FAERS Safety Report 6025304-0 (Version None)
Quarter: 2008Q4

REPORT INFORMATION
  Report Type: 
  Country: None (occurrence: None)
  Receive Date: 20081231
  Receipt Date: 20081229
  Transmission Date: 20090506
  Serious: Yes (Death, Other)
  Sender: FDA-Public Use
  Company Number: PHEH2008US10544

PATIENT
  Sex: Female

DRUGS (3)
  1. FEMARA [Suspect]
     Indication: BREAST CANCER
     Dosage: 20 MG, QD
     Route: 048
     Dates: start: 20070301, end: 20081023
  2. FOLIC ACID [Concomitant]
     Indication: NUTRITIONAL SUPPORT
     Dosage: 1 MG, QD
     Route: 048
     Dates: end: 20080930
  3. DILTIAZEM [Concomitant]
     Indication: HYPERTENSION
     Dosage: 240 MG, QD
     Route: 048
     Dates: start: 20050701, end: 20081002

REACTIONS (6)
  - ATRIAL FIBRILLATION [None]
  - GASTRITIS [None]
  - HIP FRACTURE [None]
  - LOSS OF CONSCIOUSNESS [None]
  - ORAL CANDIDIASIS [None]
  - RESPIRATORY ARREST [None]
